FAERS Safety Report 7398830-X (Version None)
Quarter: 2011Q2

REPORT INFORMATION
  Report Type: 
  Country: None (occurrence: None)
  Receive Date: 20110404
  Receipt Date: 20110404
  Transmission Date: 20111010
  Serious: Yes (Disabling, Other)
  Sender: FDA-Public Use
  Company Number: None

PATIENT
  Age: 44 Year
  Sex: Female
  Weight: 85.7298 kg

DRUGS (3)
  1. METHYLPREDNISOLONE [Concomitant]
  2. CIPROFLOXACIN HCL [Suspect]
     Indication: URINARY TRACT INFECTION
     Dosage: QTY 20 - 2 A DAY FOR 10 DAYS 1 TABLET 2X DAILY PO
     Route: 048
     Dates: start: 20110319, end: 20110326
  3. CIPROFLOXACIN HCL [Suspect]
     Indication: ADVERSE REACTION
     Dosage: QTY 20 - 2 A DAY FOR 10 DAYS 1 TABLET 2X DAILY PO
     Route: 048
     Dates: start: 20110319, end: 20110326

REACTIONS (5)
  - ABASIA [None]
  - TENDON PAIN [None]
  - PAIN IN EXTREMITY [None]
  - ARTHRALGIA [None]
  - DYSSTASIA [None]
